FAERS Safety Report 17621038 (Version 1)
Quarter: 2020Q2

REPORT INFORMATION
  Report Type: Spontaneous
  Country: US (occurrence: US)
  Receive Date: 20200403
  Receipt Date: 20200403
  Transmission Date: 20200713
  Serious: Yes (Other)
  Sender: FDA-Public Use
  Company Number: US-ADAREPHARM-2020-US-000030

PATIENT
  Age: 32 Year
  Sex: Female

DRUGS (9)
  1. TRAZODONE [Concomitant]
     Active Substance: TRAZODONE HYDROCHLORIDE
  2. CLONAZEPAM. [Concomitant]
     Active Substance: CLONAZEPAM
  3. PROPRANOLOL [Suspect]
     Active Substance: PROPRANOLOL HYDROCHLORIDE
     Indication: AUTISM SPECTRUM DISORDER
  4. ZIPRASIDONE. [Concomitant]
     Active Substance: ZIPRASIDONE
  5. LORAZEPAM. [Concomitant]
     Active Substance: LORAZEPAM
  6. RISPERIDONE. [Concomitant]
     Active Substance: RISPERIDONE
  7. HALOPERIDOL. [Interacting]
     Active Substance: HALOPERIDOL
  8. VALPROATE [Concomitant]
     Active Substance: VALPROIC ACID
  9. QUETIAPINE. [Concomitant]
     Active Substance: QUETIAPINE

REACTIONS (4)
  - Drug effective for unapproved indication [Recovered/Resolved]
  - Haemorrhage [Unknown]
  - Hypotension [Unknown]
  - Potentiating drug interaction [Recovered/Resolved]
